FAERS Safety Report 24416680 (Version 2)
Quarter: 2025Q1

REPORT INFORMATION
  Report Type: Spontaneous
  Country: CA (occurrence: CA)
  Receive Date: 20241009
  Receipt Date: 20250110
  Transmission Date: 20250409
  Serious: Yes (Other)
  Sender: CELLTRION
  Company Number: CA-PFIZER INC-202400190549

PATIENT

DRUGS (4)
  1. INFLECTRA [Suspect]
     Active Substance: INFLIXIMAB-DYYB
     Indication: Rheumatoid arthritis
     Route: 042
     Dates: start: 20240620
  2. INFLECTRA [Suspect]
     Active Substance: INFLIXIMAB-DYYB
     Route: 042
     Dates: start: 20240909
  3. DOXYCYCLINE [Concomitant]
     Active Substance: DOXYCYCLINE
  4. LOXAPINE [Concomitant]
     Active Substance: LOXAPINE

REACTIONS (14)
  - Folliculitis [Not Recovered/Not Resolved]
  - Bipolar disorder [Unknown]
  - Condition aggravated [Not Recovered/Not Resolved]
  - Head discomfort [Not Recovered/Not Resolved]
  - Fatigue [Not Recovered/Not Resolved]
  - Insomnia [Recovering/Resolving]
  - Headache [Recovering/Resolving]
  - Abdominal pain [Not Recovered/Not Resolved]
  - Nausea [Not Recovered/Not Resolved]
  - Infection [Unknown]
  - Somnolence [Unknown]
  - Skin disorder [Unknown]
  - Psoriasis [Unknown]
  - Off label use [Unknown]

NARRATIVE: CASE EVENT DATE: 20240101
